FAERS Safety Report 4684763-6 (Version None)
Quarter: 2005Q2

REPORT INFORMATION
  Report Type: 
  Country: None (occurrence: None)
  Receive Date: 20050531
  Receipt Date: 20041227
  Transmission Date: 20051028
  Serious: Yes (Hospitalization)
  Sender: FDA-Public Use
  Company Number: USA041286972

PATIENT
  Age: 22 Year
  Sex: Male

DRUGS (7)
  1. ZYPREXA ZYDIS [Suspect]
     Indication: SCHIZOPHRENIA
     Dosage: 35 MG DAY
     Dates: start: 19990101
  2. SEROQUEL [Concomitant]
  3. RISPERDAL [Concomitant]
  4. CLOZARIL [Concomitant]
  5. LITHIUM [Concomitant]
  6. TOPAMAX [Concomitant]
  7. HALDOL (HALOPERIDOL DECANOATE) [Concomitant]

REACTIONS (4)
  - DRUG INEFFECTIVE [None]
  - PRESCRIBED OVERDOSE [None]
  - SCHIZOPHRENIA [None]
  - WEIGHT DECREASED [None]
